FAERS Safety Report 7806534-1 (Version None)
Quarter: 2011Q4

REPORT INFORMATION
  Report Type: 
  Country: None (occurrence: None)
  Receive Date: 20111005
  Receipt Date: 20110922
  Transmission Date: 20120403
  Serious: Yes (Hospitalization, Other)
  Sender: FDA-Public Use
  Company Number: 2011SP045092

PATIENT
  Sex: Female

DRUGS (3)
  1. PEG-INTRON [Suspect]
     Indication: HEPATITIS C
     Dates: start: 20110518
  2. RIBAVIRIN [Suspect]
     Indication: HEPATITIS C
     Dates: start: 20110517
  3. VICTRELIS [Suspect]
     Indication: HEPATITIS C
     Dates: start: 20110615

REACTIONS (8)
  - ASTHMA [None]
  - WHITE BLOOD CELL COUNT DECREASED [None]
  - CONDITION AGGRAVATED [None]
  - ANAEMIA [None]
  - CHEST PAIN [None]
  - LUNG NEOPLASM [None]
  - SOMNOLENCE [None]
  - FEELING ABNORMAL [None]
